FAERS Safety Report 5481344-1 (Version None)
Quarter: 2007Q4

REPORT INFORMATION
  Report Type: 
  Country: None (occurrence: None)
  Receive Date: 20071005
  Receipt Date: 20071005
  Transmission Date: 20080405
  Serious: Yes (Death, Other)
  Sender: FDA-Public Use
  Company Number: None

PATIENT
  Age: 61 Year
  Sex: Female

DRUGS (1)
  1. ESTRACE [Suspect]
     Dosage: 3GM HS X2 WKS THEN 1+1/2 GM X 1 WEEK THEN 1GM 3 TIMES PER WEEK THEREAFTER

REACTIONS (3)
  - MASS [None]
  - NIPPLE PAIN [None]
  - VAGINAL DISORDER [None]
